FAERS Safety Report 7582486-7 (Version None)
Quarter: 2011Q2

REPORT INFORMATION
  Report Type: 
  Country: None (occurrence: None)
  Receive Date: 20110630
  Receipt Date: 20110622
  Transmission Date: 20111010
  Serious: Yes (Other)
  Sender: FDA-Public Use
  Company Number: JP-ASTELLAS-2011JP003401

PATIENT
  Sex: Female
  Weight: 47.9 kg

DRUGS (7)
  1. CYTARABINE [Concomitant]
     Dosage: 2400 MG/M2, UNKNOWN/D
     Route: 065
  2. PROGRAF [Suspect]
     Indication: PROPHYLAXIS AGAINST GRAFT VERSUS HOST DISEASE
     Dosage: 0.2 MG, UID/QD
     Route: 048
     Dates: start: 20091015, end: 20100607
  3. NEUPOGEN [Concomitant]
     Indication: BONE MARROW CONDITIONING REGIMEN
     Route: 065
  4. METHOTREXATE [Concomitant]
     Indication: PROPHYLAXIS AGAINST GRAFT VERSUS HOST DISEASE
     Route: 065
  5. ATG RABBIT [Suspect]
     Indication: BONE MARROW CONDITIONING REGIMEN
     Dosage: 1.25 MG/KG, UNKNOWN/D
     Route: 065
  6. URSO 250 [Concomitant]
     Dosage: 200 MG, TID
     Route: 048
     Dates: start: 20091105, end: 20100430
  7. VFEND [Concomitant]
     Dosage: 200 MG, BID
     Route: 048
     Dates: start: 20091130

REACTIONS (3)
  - CYTOMEGALOVIRUS CHORIORETINITIS [None]
  - DRUG INEFFECTIVE [None]
  - CHRONIC GRAFT VERSUS HOST DISEASE [None]
